FAERS Safety Report 12157034 (Version 1)
Quarter: 2016Q1

REPORT INFORMATION
  Report Type: Report from Study
  Country: CA (occurrence: CA)
  Receive Date: 20160307
  Receipt Date: 20160307
  Transmission Date: 20160526
  Serious: Yes (Other)
  Sender: FDA-Public Use
  Company Number: CA-CELGENE-CAN-2016026022

PATIENT
  Age: 67 Year
  Sex: Male
  Weight: 81.8 kg

DRUGS (4)
  1. REVLIMID [Suspect]
     Active Substance: LENALIDOMIDE
     Indication: PLASMA CELL MYELOMA
     Route: 048
     Dates: start: 20151007, end: 20151230
  2. BUSULFAN [Suspect]
     Active Substance: BUSULFAN
     Indication: PLASMA CELL MYELOMA
     Route: 041
     Dates: start: 20150624, end: 20150626
  3. REVLIMID [Suspect]
     Active Substance: LENALIDOMIDE
     Route: 048
     Dates: start: 20151231
  4. MELPHALAN [Suspect]
     Active Substance: MELPHALAN
     Indication: PLASMA CELL MYELOMA
     Dosage: 240 MILLIGRAM
     Route: 041
     Dates: start: 20150627, end: 20150627

REACTIONS (1)
  - Prostate cancer [Not Recovered/Not Resolved]

NARRATIVE: CASE EVENT DATE: 20160211
